FAERS Safety Report 8207197-6 (Version None)
Quarter: 2012Q1

REPORT INFORMATION
  Report Type: 
  Country: None (occurrence: None)
  Receive Date: 20120314
  Receipt Date: 20120308
  Transmission Date: 20120608
  Serious: No
  Sender: FDA-Public Use
  Company Number: US-PFIZER INC-2012063013

PATIENT

DRUGS (10)
  1. CIPROFLOXACIN [Suspect]
     Dosage: UNK
  2. DEMEROL [Suspect]
     Dosage: UNK
  3. MACRODANTIN [Suspect]
     Dosage: UNK
  4. CODEINE SULFATE [Suspect]
     Dosage: UNK
  5. ALBUTEROL [Suspect]
     Dosage: UNK
  6. DILAUDID [Suspect]
     Dosage: UNK
  7. FLAGYL [Suspect]
     Dosage: UNK
  8. PERCOCET [Suspect]
     Dosage: UNK
  9. MORPHINE SULFATE [Suspect]
     Dosage: UNK
  10. REGLAN [Suspect]
     Dosage: UNK

REACTIONS (1)
  - DRUG HYPERSENSITIVITY [None]
